FAERS Safety Report 16755750 (Version 1)
Quarter: 2019Q3

REPORT INFORMATION
  Report Type: Spontaneous
  Country: US (occurrence: US)
  Receive Date: 20190829
  Receipt Date: 20190829
  Transmission Date: 20191005
  Serious: No
  Sender: FDA-Public Use
  Company Number: US-ASTRAZENECA-2019SF10721

PATIENT
  Age: 896 Month
  Sex: Female
  Weight: 90.7 kg

DRUGS (2)
  1. BEVESPI AEROSPHERE [Suspect]
     Active Substance: FORMOTEROL FUMARATE\GLYCOPYRROLATE
     Indication: LUNG DISORDER
     Dosage: 9MCG/4.8MCG 2 PUFFS TWICE A DAY
     Route: 055
     Dates: start: 2017
  2. BEVESPI AEROSPHERE [Suspect]
     Active Substance: FORMOTEROL FUMARATE\GLYCOPYRROLATE
     Indication: BRONCHIAL DISORDER
     Dosage: 9MCG/4.8MCG 2 PUFFS TWICE A DAY
     Route: 055
     Dates: start: 2017

REACTIONS (6)
  - Intentional device misuse [Unknown]
  - Device difficult to use [Unknown]
  - Cough [Not Recovered/Not Resolved]
  - Pneumonia [Unknown]
  - Lung disorder [Unknown]
  - Incorrect dose administered [Unknown]

NARRATIVE: CASE EVENT DATE: 201802
